FAERS Safety Report 23211932 (Version 1)
Quarter: 2023Q4

REPORT INFORMATION
  Report Type: Spontaneous
  Country: US (occurrence: US)
  Receive Date: 20231121
  Receipt Date: 20231121
  Transmission Date: 20240109
  Serious: Yes (Death, Other)
  Sender: FDA-Public Use
  Company Number: US-ENDO-CASE-0043180

PATIENT
  Sex: Female

DRUGS (3)
  1. OXYTOCIN [Suspect]
     Active Substance: OXYTOCIN
  2. PERCOCET [Suspect]
     Active Substance: ACETAMINOPHEN\OXYCODONE HYDROCHLORIDE
  3. OXYCODONE [Suspect]
     Active Substance: OXYCODONE

REACTIONS (3)
  - Death [Fatal]
  - Dependence [Unknown]
  - Suicide attempt [Unknown]
